FAERS Safety Report 5100161-5 (Version None)
Quarter: 2006Q3

REPORT INFORMATION
  Report Type: 
  Country: None (occurrence: None)
  Receive Date: 20060908
  Receipt Date: 20060829
  Transmission Date: 20061208
  Serious: Yes (Life-Threatening, Hospitalization, Other)
  Sender: FDA-Public Use
  Company Number: BE-ABBOTT-06P-013-0342490-00

PATIENT
  Age: 38 Year
  Sex: Female

DRUGS (9)
  1. LOPINAVIR/RITONAVIR [Suspect]
     Indication: HIV INFECTION
     Dosage: 400 MG / 100 MG
     Route: 065
     Dates: start: 20030101
  2. STAVUDINE [Concomitant]
     Indication: HIV INFECTION
     Route: 065
  3. ABACAVIR [Concomitant]
     Indication: HIV INFECTION
     Route: 065
  4. CABERGOLINE [Concomitant]
     Indication: BLOOD PROLACTIN
     Route: 065
     Dates: start: 19971001
  5. DIDANOSINE [Concomitant]
     Indication: HIV INFECTION
     Route: 065
  6. EFAVIRENZ [Concomitant]
     Indication: HIV INFECTION
     Route: 065
  7. ZIDOVUDINE [Concomitant]
     Indication: HIV INFECTION
     Route: 065
  8. LAMIVUDINE [Concomitant]
     Indication: HIV INFECTION
     Route: 065
  9. TENOFOVIR [Concomitant]
     Indication: HIV INFECTION
     Route: 065

REACTIONS (13)
  - ASCITES [None]
  - FACTOR VIII DEFICIENCY [None]
  - HAEMATEMESIS [None]
  - HEPATOSPLENOMEGALY [None]
  - HOMOCYSTINAEMIA [None]
  - HYPOCHROMIC ANAEMIA [None]
  - HYPOTENSION [None]
  - LIPODYSTROPHY ACQUIRED [None]
  - MELAENA [None]
  - OESOPHAGEAL VARICES HAEMORRHAGE [None]
  - PORTAL VEIN THROMBOSIS [None]
  - PROTEIN S DEFICIENCY [None]
  - VON WILLEBRAND'S DISEASE [None]
